FAERS Safety Report 8247939 (Version 5)
Quarter: 2013Q2

REPORT INFORMATION
  Report Type: Spontaneous
  Country: US (occurrence: US)
  Receive Date: 20111116
  Receipt Date: 20130416
  Transmission Date: 20140414
  Serious: Yes (Hospitalization, Other)
  Sender: FDA-Public Use
  Company Number: US-ASTRAZENECA-2011SE67476

PATIENT
  Age: 62 Year
  Sex: Female

DRUGS (8)
  1. TOPROL XL [Suspect]
     Route: 048
  2. METOPROLOL [Suspect]
     Dosage: GENERIC
  3. LISINOPRIL [Suspect]
     Route: 048
  4. CALAN [Suspect]
  5. CLONAZEPAM [Concomitant]
  6. LORATADINE [Concomitant]
  7. TRIAMTERENE [Concomitant]
  8. ASPIRIN [Concomitant]

REACTIONS (10)
  - Multiple allergies [Unknown]
  - Blood pressure increased [Unknown]
  - Blood pressure fluctuation [Unknown]
  - Drug hypersensitivity [Unknown]
  - Bradycardia [Unknown]
  - Dizziness [Unknown]
  - Nausea [Unknown]
  - Presyncope [Unknown]
  - Drug ineffective [Unknown]
  - Drug dose omission [Unknown]
